FAERS Safety Report 20063636 (Version 1)
Quarter: 2021Q4

REPORT INFORMATION
  Report Type: Spontaneous
  Country: BR (occurrence: BR)
  Receive Date: 20211112
  Receipt Date: 20211112
  Transmission Date: 20220303
  Serious: Yes (Disabling)
  Sender: FDA-Public Use
  Company Number: BR-BIOMARINAP-BR-2021-138935

PATIENT
  Age: 26 Year
  Sex: Female
  Weight: 28.5 kg

DRUGS (1)
  1. VIMIZIM [Suspect]
     Active Substance: ELOSULFASE ALFA
     Indication: Mucopolysaccharidosis IV
     Dosage: UNK, QW
     Route: 042
     Dates: start: 201701

REACTIONS (2)
  - Pain [Not Recovered/Not Resolved]
  - Muscular weakness [Not Recovered/Not Resolved]
